FAERS Safety Report 22084946 (Version 5)
Quarter: 2023Q2

REPORT INFORMATION
  Report Type: Report from Study
  Country: CO (occurrence: CO)
  Receive Date: 20230310
  Receipt Date: 20230515
  Transmission Date: 20230722
  Serious: Yes (Other)
  Sender: FDA-Public Use
  Company Number: CO-002147023-PHHY2019CO199144

PATIENT
  Age: 43 Year
  Sex: Female
  Weight: 85 kg

DRUGS (4)
  1. COSENTYX [Suspect]
     Active Substance: SECUKINUMAB
     Indication: Psoriatic arthropathy
     Dosage: 300 MG, QW
     Route: 058
     Dates: start: 20190802
  2. COSENTYX [Suspect]
     Active Substance: SECUKINUMAB
     Indication: Psoriasis
     Dosage: 300 MG, QMO
     Route: 058
  3. COSENTYX [Suspect]
     Active Substance: SECUKINUMAB
     Dosage: 300 MG, QMO (22 AUG) (LAST APPLICATION)
     Route: 058
  4. COSENTYX [Suspect]
     Active Substance: SECUKINUMAB
     Dosage: UNK
     Route: 065
     Dates: start: 20230414

REACTIONS (22)
  - Deafness [Unknown]
  - Psoriatic arthropathy [Unknown]
  - Toothache [Recovering/Resolving]
  - Pyrexia [Recovered/Resolved]
  - Dry mouth [Recovering/Resolving]
  - Dry skin [Recovering/Resolving]
  - Skin exfoliation [Recovering/Resolving]
  - Lip dry [Recovering/Resolving]
  - Illness [Unknown]
  - Head discomfort [Unknown]
  - Visual impairment [Unknown]
  - Onychomadesis [Unknown]
  - Dry eye [Unknown]
  - Injection site pain [Unknown]
  - Injection site erythema [Unknown]
  - Injection site irritation [Unknown]
  - Malaise [Unknown]
  - Ear pain [Recovered/Resolved]
  - Ear discomfort [Recovered/Resolved]
  - Otorrhoea [Recovered/Resolved]
  - Ear inflammation [Recovered/Resolved]
  - Psoriasis [Recovered/Resolved]

NARRATIVE: CASE EVENT DATE: 20190820
